FAERS Safety Report 5168508-1 (Version None)
Quarter: 2006Q4

REPORT INFORMATION
  Report Type: 
  Country: None (occurrence: None)
  Receive Date: 20061208
  Receipt Date: 20061002
  Transmission Date: 20070319
  Serious: Yes (Hospitalization)
  Sender: FDA-Public Use
  Company Number: SE-BOEHRINGER INGELHEIM PHARMACEUTICALS, INC.-2006-SW-00399SW

PATIENT
  Sex: Male

DRUGS (7)
  1. SPIRIVA [Suspect]
     Indication: ALVEOLITIS ALLERGIC
     Dates: start: 20060713
  2. VENTOLIN [Suspect]
     Dates: start: 20060713
  3. PLAVIX [Concomitant]
     Indication: STENT PLACEMENT
     Dates: start: 20060724
  4. EMCONCOR [Concomitant]
     Dates: start: 20030101
  5. ATACAND [Concomitant]
     Indication: HYPERTENSION
     Dates: start: 20030101
  6. TROMBYL [Concomitant]
     Dates: start: 20030101
  7. PREDNISOLONE [Concomitant]
     Indication: MYALGIA
     Dates: start: 20050101

REACTIONS (3)
  - CHEST DISCOMFORT [None]
  - NAUSEA [None]
  - PALPITATIONS [None]
